FAERS Safety Report 19685249 (Version 1)
Quarter: 2021Q3

REPORT INFORMATION
  Report Type: Spontaneous
  Country: SG (occurrence: SG)
  Receive Date: 20210811
  Receipt Date: 20210811
  Transmission Date: 20211014
  Serious: Yes (Hospitalization, Other)
  Sender: FDA-Public Use
  Company Number: SG-ROCHE-2882712

PATIENT
  Age: 55 Year
  Sex: Female

DRUGS (1)
  1. KADCYLA [Suspect]
     Active Substance: ADO-TRASTUZUMAB EMTANSINE
     Indication: BREAST CANCER
     Route: 065

REACTIONS (8)
  - Fracture [Unknown]
  - Abdominal pain upper [Unknown]
  - Pyrexia [Unknown]
  - Malaise [Unknown]
  - Escherichia infection [Unknown]
  - Device related infection [Unknown]
  - Neoplasm malignant [Unknown]
  - Cancer pain [Unknown]
